FAERS Safety Report 7855050-X (Version None)
Quarter: 2011Q4

REPORT INFORMATION
  Report Type: 
  Country: None (occurrence: None)
  Receive Date: 20111026
  Receipt Date: 20111017
  Transmission Date: 20120403
  Serious: Yes (Congenital Anomaly)
  Sender: FDA-Public Use
  Company Number: US-GILEAD-2011-0045130

PATIENT

DRUGS (4)
  1. COMBIVIR [Concomitant]
     Indication: HIV INFECTION
     Dosage: UNK
     Route: 064
     Dates: start: 20091015
  2. NEVIRAPINE [Concomitant]
     Indication: HIV INFECTION
     Dosage: UNK
     Route: 064
     Dates: start: 20091015, end: 20100215
  3. KALETRA [Concomitant]
     Indication: HIV INFECTION
     Dosage: UNK
     Route: 064
     Dates: start: 20100215
  4. TENOFOVIR DISOPROXIL FUMARATE [Suspect]
     Route: 064

REACTIONS (1)
  - VENTRICULAR SEPTAL DEFECT [None]
